FAERS Safety Report 11952426 (Version 1)
Quarter: 2016Q1

REPORT INFORMATION
  Report Type: Not Available
  Country: US (occurrence: US)
  Receive Date: 20160125
  Receipt Date: 20160125
  Transmission Date: 20160526
  Serious: No
  Sender: FDA-Public Use
  Company Number: US-CIPHERPHARMA-2015-US-000678

PATIENT
  Sex: Female

DRUGS (1)
  1. SITAVIG [Suspect]
     Active Substance: ACYCLOVIR
     Dosage: ONE TABLET
     Route: 048
     Dates: start: 20151204

REACTIONS (1)
  - Accidental exposure to product [Unknown]

NARRATIVE: CASE EVENT DATE: 20151204
